FAERS Safety Report 15810897 (Version 1)
Quarter: 2019Q1

REPORT INFORMATION
  Report Type: Report from Study
  Country: DE (occurrence: DE)
  Receive Date: 20190111
  Receipt Date: 20190111
  Transmission Date: 20190417
  Serious: Yes (Life-Threatening, Hospitalization, Other)
  Sender: FDA-Public Use
  Company Number: DE-TEVA-2019-DE-997388

PATIENT
  Age: 72 Year
  Sex: Female
  Weight: 69 kg

DRUGS (7)
  1. FORADIL [Interacting]
     Active Substance: FORMOTEROL FUMARATE
     Indication: BRONCHITIS CHRONIC
     Dosage: 1 DOSAGE FORMS DAILY;
     Route: 055
  2. DIGITOXIN [Concomitant]
     Active Substance: DIGITOXIN
     Indication: CARDIAC FAILURE
     Dosage: 70 MICROGRAM DAILY;
     Route: 048
  3. BRONCHORETARD [Interacting]
     Active Substance: THEOPHYLLINE ANHYDROUS
     Indication: BRONCHITIS CHRONIC
     Dosage: 1 GRAM DAILY;
     Route: 048
     Dates: start: 20030226, end: 20030304
  4. VERAPAMIL [Suspect]
     Active Substance: VERAPAMIL HYDROCHLORIDE
     Indication: ANGINA PECTORIS
     Dosage: 160 MILLIGRAM DAILY;
     Route: 048
     Dates: end: 20030304
  5. LORZAAR PLUS [Interacting]
     Active Substance: HYDROCHLOROTHIAZIDE\LOSARTAN POTASSIUM
     Indication: HYPERTENSION
     Dosage: 1 DOSAGE FORMS DAILY;
     Route: 055
     Dates: end: 20030304
  6. TIOTROPIUM BROMIDE ^SPIRIVA^ [Interacting]
     Active Substance: TIOTROPIUM BROMIDE
     Indication: BRONCHITIS CHRONIC
     Dosage: 1 DOSAGE FORMS DAILY;
     Route: 055
     Dates: start: 200210, end: 20030304
  7. ATEMUR ^GLAXO WELLCOME^ [Concomitant]
     Indication: BRONCHITIS CHRONIC
     Dosage: 500 MICROGRAM DAILY;
     Route: 055
     Dates: end: 20030304

REACTIONS (7)
  - Tachycardia [Recovered/Resolved]
  - Dyspnoea [Recovered/Resolved]
  - Atrial fibrillation [Recovered/Resolved]
  - Drug interaction [Recovered/Resolved]
  - Respiratory tract infection [Recovered/Resolved]
  - Tachyarrhythmia [Recovered/Resolved]
  - Restlessness [Recovered/Resolved]

NARRATIVE: CASE EVENT DATE: 20030226
